FAERS Safety Report 8786362 (Version 1)
Quarter: 2012Q4

REPORT INFORMATION
  Report Type: 
  Country: CA (occurrence: CA)
  Receive Date: 20120914
  Receipt Date: 20120914
  Transmission Date: 20130627
  Serious: Yes (Hospitalization)
  Sender: FDA-Public Use
  Company Number: CA-PFIZER INC-2012225389

PATIENT
  Age: 50 Year
  Sex: Female

DRUGS (1)
  1. ZIPRASIDONE HCL [Suspect]
     Dosage: UNK
     Dates: start: 201209

REACTIONS (2)
  - Anaphylactoid reaction [Unknown]
  - Blood pressure increased [Unknown]
